FAERS Safety Report 4512798-2 (Version None)
Quarter: 2004Q4

REPORT INFORMATION
  Report Type: 
  Country: None (occurrence: None)
  Receive Date: 20041119
  Receipt Date: 20041119
  Transmission Date: 20050328
  Serious: No
  Sender: FDA-Public Use
  Company Number: None

PATIENT
  Age: 74 Year
  Sex: Female

DRUGS (1)
  1. CARDURA [Suspect]
     Dosage: 1 MG HS

REACTIONS (1)
  - ANAPHYLACTOID REACTION [None]
